FAERS Safety Report 5525262-9 (Version None)
Quarter: 2007Q4

REPORT INFORMATION
  Report Type: 
  Country: None (occurrence: None)
  Receive Date: 20071126
  Receipt Date: 20071121
  Transmission Date: 20080405
  Serious: Yes (Other)
  Sender: FDA-Public Use
  Company Number: US-BRISTOL-MYERS SQUIBB COMPANY-13990445

PATIENT
  Sex: Male

DRUGS (1)
  1. TEQUIN [Suspect]

REACTIONS (5)
  - DIABETES INSIPIDUS [None]
  - FATIGUE [None]
  - MULTI-ORGAN FAILURE [None]
  - RENAL FAILURE [None]
  - TYPE 1 DIABETES MELLITUS [None]
